FAERS Safety Report 4306873-5 (Version None)
Quarter: 2004Q1

REPORT INFORMATION
  Report Type: 
  Country: None (occurrence: None)
  Receive Date: 20040227
  Receipt Date: 20031225
  Transmission Date: 20041129
  Serious: Yes (Hospitalization)
  Sender: FDA-Public Use
  Company Number: JP-GLAXOSMITHKLINE-B0318576A

PATIENT
  Age: 40 Year
  Sex: Male

DRUGS (4)
  1. PAROXETINE HCL [Suspect]
     Indication: DEPRESSION
     Dosage: 40MG PER DAY
     Route: 048
     Dates: start: 20020514, end: 20020614
  2. ALPRAZOLAM [Suspect]
     Indication: DEPRESSION
     Dosage: 1.2MG PER DAY
     Route: 048
     Dates: start: 20020514, end: 20020614
  3. SULPIRIDE [Suspect]
     Indication: DEPRESSION
     Dosage: 150MG PER DAY
     Route: 048
     Dates: start: 20020514, end: 20020614
  4. FLUNITRAZEPAM [Concomitant]
     Indication: DEPRESSION
     Dosage: 1MG PER DAY
     Route: 048
     Dates: start: 20020514, end: 20020614

REACTIONS (10)
  - ABDOMINAL PAIN UPPER [None]
  - ALANINE AMINOTRANSFERASE INCREASED [None]
  - ALCOHOLIC LIVER DISEASE [None]
  - ANOREXIA [None]
  - ASPARTATE AMINOTRANSFERASE INCREASED [None]
  - GAMMA-GLUTAMYLTRANSFERASE INCREASED [None]
  - HEPATIC STEATOSIS [None]
  - LIVER DISORDER [None]
  - MALAISE [None]
  - PYREXIA [None]
